FAERS Safety Report 25250938 (Version 2)
Quarter: 2025Q2

REPORT INFORMATION
  Report Type: Spontaneous
  Country: IT (occurrence: IT)
  Receive Date: 20250429
  Receipt Date: 20250502
  Transmission Date: 20250717
  Serious: Yes (Other)
  Sender: ADC THERAPEUTICS
  Company Number: IT-ADC THERAPEUTICS SA-ADC-2025-000108

PATIENT

DRUGS (1)
  1. ZYNLONTA [Suspect]
     Active Substance: LONCASTUXIMAB TESIRINE-LPYL
     Indication: Product used for unknown indication

REACTIONS (3)
  - Capillary leak syndrome [Unknown]
  - Collagen-vascular disease [Unknown]
  - Telangiectasia [Unknown]
